FAERS Safety Report 9848102 (Version 1)
Quarter: 2013Q4

REPORT INFORMATION
  Report Type: Spontaneous
  Country: US (occurrence: None)
  Receive Date: 20131226
  Receipt Date: 20131226
  Transmission Date: 20140711
  Serious: No
  Sender: FDA-Public Use
  Company Number: PHEH2013US001517

PATIENT
  Age: 73 Year
  Sex: Female

DRUGS (12)
  1. ARCAPTA (INDACATEROL) UNKNOWN [Suspect]
     Indication: CHRONIC OBSTRUCTIVE PULMONARY DISEASE
     Route: 055
  2. ZOLOFT (SERTRALINE HYDROCHLORIDE) [Suspect]
  3. LISINOPRIL (LISNOPRIL) [Concomitant]
  4. CRESTOR (ROSUVASTATIN CALCIUM) [Concomitant]
  5. LEVOFLOXACIN (LEVOFLOXACIN) [Concomitant]
  6. PREVACID (LANSOPRAZOLE) [Concomitant]
  7. ALPRAZOLAM (ALPRAZOLAM) [Concomitant]
  8. B-COMPLEX [Concomitant]
  9. FISH OIL (FISH OIL) [Concomitant]
  10. VITAMIN D (ERGOCALCIFEROL) [Concomitant]
  11. ASPIRIN (ACETYLSALICYLIC ACID) [Concomitant]
  12. GABAPENTIN (GABAPENTIN) [Concomitant]

REACTIONS (2)
  - Chest discomfort [None]
  - Dyspnoea [None]
